FAERS Safety Report 19064582 (Version 2)
Quarter: 2021Q2

REPORT INFORMATION
  Report Type: Spontaneous
  Country: AR (occurrence: AR)
  Receive Date: 20210326
  Receipt Date: 20210427
  Transmission Date: 20210717
  Serious: Yes (Hospitalization, Other)
  Sender: FDA-Public Use
  Company Number: AR-MYLANLABS-2021M1017831

PATIENT
  Age: 37 Year
  Sex: Male

DRUGS (3)
  1. LAPENAX [Suspect]
     Active Substance: CLOZAPINE
     Dosage: UNK
     Dates: start: 202101
  2. LAPENAX [Suspect]
     Active Substance: CLOZAPINE
     Indication: AGGRESSION
     Dosage: 300 MILLIGRAM, QD
     Dates: start: 201909
  3. LAPENAX [Suspect]
     Active Substance: CLOZAPINE
     Indication: BEHAVIOUR DISORDER
     Dosage: UNK
     Dates: start: 20110101

REACTIONS (3)
  - Neutropenia [Recovered/Resolved]
  - Off label use [Unknown]
  - Behaviour disorder [Unknown]

NARRATIVE: CASE EVENT DATE: 201909
